FAERS Safety Report 5098133-2 (Version None)
Quarter: 2006Q3

REPORT INFORMATION
  Report Type: 
  Country: None (occurrence: None)
  Receive Date: 20060906
  Receipt Date: 20060424
  Transmission Date: 20061208
  Serious: No
  Sender: FDA-Public Use
  Company Number: US-GLAXOSMITHKLINE-A0602988A

PATIENT
  Age: 38 Year
  Sex: Female

DRUGS (5)
  1. REQUIP [Suspect]
     Dosage: .5MG PER DAY
     Route: 048
  2. WELLBUTRIN [Concomitant]
  3. ZOLOFT [Concomitant]
  4. FLECAINIDE ACETATE [Concomitant]
  5. ATENOLOL [Concomitant]

REACTIONS (2)
  - HEART RATE IRREGULAR [None]
  - PALPITATIONS [None]
